FAERS Safety Report 4278289-1 (Version None)
Quarter: 2004Q1

REPORT INFORMATION
  Report Type: 
  Country: None (occurrence: None)
  Receive Date: 20040121
  Receipt Date: 20040106
  Transmission Date: 20041129
  Serious: Yes (Hospitalization, Disabling)
  Sender: FDA-Public Use
  Company Number: A03200400022

PATIENT
  Age: 50 Year
  Sex: Female

DRUGS (2)
  1. ARALEN [Suspect]
     Dosage: 500 MG QD ORAL
     Route: 048
  2. UNKNOWN ARTHRITIS MEDICATION [Concomitant]

REACTIONS (8)
  - CARDIAC FAILURE CONGESTIVE [None]
  - CARDIOMYOPATHY [None]
  - CORONARY ARTERY ATHEROSCLEROSIS [None]
  - DILATATION VENTRICULAR [None]
  - HEART TRANSPLANT [None]
  - RENAL FAILURE [None]
  - VENTRICULAR HYPERTROPHY [None]
  - VISUAL ACUITY REDUCED [None]
